FAERS Safety Report 4609060-6 (Version None)
Quarter: 2005Q1

REPORT INFORMATION
  Report Type: 
  Country: None (occurrence: None)
  Receive Date: 20050311
  Receipt Date: 20050307
  Transmission Date: 20050727
  Serious: Yes (Hospitalization, Other)
  Sender: FDA-Public Use
  Company Number: KII-2005-0015423

PATIENT
  Age: 45 Year
  Sex: Male

DRUGS (18)
  1. OXYCODONE HCL [Suspect]
     Dosage: ORAL
     Route: 048
  2. LOPERAMIDE (LOPERAMIDE) [Suspect]
     Dosage: ORAL
     Route: 048
  3. VALPROIC ACID [Suspect]
     Dosage: ORAL
     Route: 048
  4. ACETAMINOPHEN AND HYDROCODONE BITARTRATE [Suspect]
     Dosage: ORAL
     Route: 048
  5. ANTIRETROVIRAL [Suspect]
     Dosage: ORAL
     Route: 048
  6. ACYCLOVIR [Suspect]
     Dosage: ORAL
     Route: 048
  7. OTHER ANTI-ASTHMATICS FOR SYSTEMIC USE [Suspect]
     Dosage: ORAL
     Route: 048
  8. ANTIFUNGALS FOR SYSTEMIC USE [Suspect]
     Dosage: ORAL
     Route: 048
  9. TRAZODONE (TRAZODONE) [Suspect]
     Dosage: ORAL
     Route: 048
  10. ANTIBIOTICS [Suspect]
     Dosage: ORAL
     Route: 048
  11. ANTIHISTAMINES FOR SYSTEMIC USE [Suspect]
     Dosage: ORAL
     Route: 048
  12. SALICYLATES(SALICYLATES) [Suspect]
     Dosage: ORAL
     Route: 048
  13. PHENOTHIAZINE (PHENOTHIAZINE) [Suspect]
     Dosage: ORAL
     Route: 048
  14. DHEA(PRASTERONE) [Suspect]
     Dosage: ORAL
     Route: 048
  15. PROTON PUMP INIHIBITOR [Suspect]
     Dosage: ORAL
     Route: 048
  16. METHYLPHENIDATE (METHYLPHENIDATE) [Suspect]
     Dosage: ORAL
     Route: 048
  17. MULTIVITAMINS AND IRON [Suspect]
     Dosage: ORAL
     Route: 048
  18. ACETYLSALICYLIC ACID (ACETYLSALICYLIC ACID) [Suspect]
     Dosage: ORAL
     Route: 048

REACTIONS (10)
  - ACUTE RESPIRATORY DISTRESS SYNDROME [None]
  - AGITATION [None]
  - BLOOD GLUCOSE INCREASED [None]
  - BODY TEMPERATURE DECREASED [None]
  - BOWEL SOUNDS ABNORMAL [None]
  - COMA [None]
  - HYPOTENSION [None]
  - MIOSIS [None]
  - OVERDOSE [None]
  - RESPIRATORY DEPRESSION [None]
